FAERS Safety Report 6231568-0 (Version None)
Quarter: 2009Q2

REPORT INFORMATION
  Report Type: 
  Country: None (occurrence: None)
  Receive Date: 20090616
  Receipt Date: 20090604
  Transmission Date: 20091009
  Serious: Yes (Hospitalization)
  Sender: FDA-Public Use
  Company Number: JP-AMGEN-US351006

PATIENT
  Age: 81 Year
  Sex: Female

DRUGS (3)
  1. ENBREL [Suspect]
     Indication: RHEUMATOID ARTHRITIS
     Route: 058
     Dates: start: 20090417, end: 20090527
  2. CORTICOSTEROID NOS [Concomitant]
     Route: 048
     Dates: end: 20090527
  3. AZULFIDINE EN-TABS [Concomitant]
     Route: 048
     Dates: end: 20090527

REACTIONS (2)
  - PNEUMOCYSTIS JIROVECI PNEUMONIA [None]
  - PYREXIA [None]
